FAERS Safety Report 6562255-7 (Version None)
Quarter: 2010Q1

REPORT INFORMATION
  Report Type: 
  Country: None (occurrence: None)
  Receive Date: 20100130
  Receipt Date: 20091229
  Transmission Date: 20100710
  Serious: No
  Sender: FDA-Public Use
  Company Number: US-ABBOTT-09P-163-0607025-00

PATIENT
  Sex: Female
  Weight: 59.02 kg

DRUGS (1)
  1. HUMIRA [Suspect]
     Indication: RHEUMATOID ARTHRITIS
     Dates: start: 20091024

REACTIONS (4)
  - EXFOLIATIVE RASH [None]
  - INJECTION SITE ERYTHEMA [None]
  - JOINT STIFFNESS [None]
  - RASH ERYTHEMATOUS [None]
